FAERS Safety Report 8156316-9 (Version None)
Quarter: 2012Q1

REPORT INFORMATION
  Report Type: 
  Country: None (occurrence: None)
  Receive Date: 20120216
  Receipt Date: 20120203
  Transmission Date: 20120608
  Serious: Yes (Other)
  Sender: FDA-Public Use
  Company Number: 1000028299

PATIENT
  Age: 68 Year
  Sex: Male
  Weight: 74 kg

DRUGS (5)
  1. BETNESOL (BETAMETHASONE SODIUM PHOSPHATE) (BETAMETHASONE SODIUM PHOSPH [Concomitant]
  2. ROFLUMILAST (ROFLUMILAST) (TABLETS) [Suspect]
     Indication: ASTHMA
     Dates: start: 20110901, end: 20120101
  3. SINGULAIR (MONTELUKAST) (MONTELUKAST SODIUM)  (MONTELUKAST SODIUM) [Concomitant]
  4. BAMBEC (BAMBUTEROL HYDROCHLORIDE) (BAMBUTEROL HYDROCHLORIDE) [Concomitant]
  5. SERETIDE (FLUTICASONE, SALMETEROL) (FLUTICASONE, SALMETEROL) [Concomitant]

REACTIONS (4)
  - NAUSEA [None]
  - DIARRHOEA [None]
  - WEIGHT DECREASED [None]
  - EPISTAXIS [None]
